FAERS Safety Report 9849694 (Version 1)
Quarter: 2014Q1

REPORT INFORMATION
  Report Type: Spontaneous
  Country: US (occurrence: None)
  Receive Date: 20140124
  Receipt Date: 20140124
  Transmission Date: 20141002
  Serious: Yes (Other)
  Sender: FDA-Public Use
  Company Number: None

PATIENT
  Age: 53 Year
  Sex: Female
  Weight: 63.05 kg

DRUGS (1)
  1. BUPROPION HYDROCHLORIDE XL [Suspect]
     Indication: DEPRESSION
     Dosage: 1 PILL  ONCE DAILY  TAKEN BY MOUTH
     Route: 048
     Dates: start: 20140106, end: 20140118

REACTIONS (9)
  - Product substitution issue [None]
  - Product quality issue [None]
  - Palpitations [None]
  - Anxiety [None]
  - Agitation [None]
  - Depression [None]
  - Crying [None]
  - Abnormal dreams [None]
  - Sleep talking [None]
